FAERS Safety Report 8166262-2 (Version None)
Quarter: 2012Q1

REPORT INFORMATION
  Report Type: 
  Country: None (occurrence: None)
  Receive Date: 20120227
  Receipt Date: 20110706
  Transmission Date: 20120608
  Serious: No
  Sender: FDA-Public Use
  Company Number: US-MYLANLABS-2011S1010548

PATIENT
  Age: 24 Year
  Sex: Female
  Weight: 58.51 kg

DRUGS (2)
  1. AMNESTEEM [Suspect]
     Indication: ACNE
     Route: 048
     Dates: start: 20110307, end: 20110411
  2. MIRCETTE [Suspect]
     Indication: CONTRACEPTION
     Route: 048
     Dates: start: 20110202

REACTIONS (1)
  - MOOD SWINGS [None]
